FAERS Safety Report 8244066-X (Version None)
Quarter: 2012Q1

REPORT INFORMATION
  Report Type: 
  Country: None (occurrence: None)
  Receive Date: 20120329
  Receipt Date: 20120321
  Transmission Date: 20120608
  Serious: Yes (Hospitalization)
  Sender: FDA-Public Use
  Company Number: CA-ELI_LILLY_AND_COMPANY-CA201203006674

PATIENT
  Sex: Female

DRUGS (2)
  1. HUMULIN N [Suspect]
     Dosage: UNK
     Dates: start: 20110101
  2. HUMULIN R [Suspect]
     Dosage: UNK
     Dates: start: 20110101

REACTIONS (1)
  - CARDIAC PACEMAKER INSERTION [None]
